FAERS Safety Report 4911928-8 (Version None)
Quarter: 2006Q1

REPORT INFORMATION
  Report Type: 
  Country: None (occurrence: None)
  Receive Date: 20060215
  Receipt Date: 20051212
  Transmission Date: 20060701
  Serious: Yes (Hospitalization, Other)
  Sender: FDA-Public Use
  Company Number: PHEH2005US13361

PATIENT
  Age: 84 Year
  Sex: Female

DRUGS (18)
  1. ZOMETA [Suspect]
     Indication: METASTASES TO BONE
     Dosage: 4MG Q8WK
     Route: 042
     Dates: start: 20031121, end: 20050517
  2. XELODA [Concomitant]
     Indication: BREAST CANCER
     Dosage: 1000MG BID X14D
     Dates: start: 20020402
  3. LEVOTHYROXINE SODIUM [Concomitant]
     Indication: HYPOTHYROIDISM
     Dosage: 0.1MG QD
  4. DIAZEPAM [Concomitant]
     Indication: ANXIETY
     Dosage: 5-10MG PRN
     Dates: start: 20040209
  5. OXYBUTYNIN [Concomitant]
  6. HYDROMORPHONE HCL [Concomitant]
     Indication: BONE PAIN
     Dosage: 2-4MG Q4H PRN
     Dates: start: 20031103
  7. PRILOSEC [Concomitant]
     Indication: GASTROINTESTINAL HAEMORRHAGE
     Dosage: 20MG QD
     Dates: start: 20030410
  8. ASPIRIN [Concomitant]
     Dosage: 81MG QD
  9. ALEVE [Concomitant]
  10. AREDIA [Suspect]
     Indication: BONE DISORDER
     Dosage: 90MG Q8WK
     Dates: start: 20010614, end: 20031002
  11. AREDIA [Suspect]
     Dosage: 90MG Q8WK
     Dates: start: 20050816
  12. ARANESP [Concomitant]
     Indication: ANAEMIA
     Dosage: 200MCG Q2WK
     Dates: start: 20020606, end: 20051025
  13. ALLOPURINOL [Concomitant]
     Indication: GOUT
     Dosage: 100MG QD
  14. NAPROSYN [Concomitant]
     Indication: PAIN
     Dosage: 250MG TID PRN
     Dates: start: 20030605
  15. NITROGLYCERIN ^PHARMACIA + UPJOHN^ [Concomitant]
     Indication: CHEST PAIN
     Dosage: PRN
  16. ANTIVERT [Concomitant]
     Indication: VERTIGO
     Dosage: 25MG PRN
  17. DARVOCET-N 50 [Concomitant]
     Indication: PAIN
     Dosage: Q4H PRN
     Dates: start: 20050614
  18. MALIC ACID [Concomitant]
     Dosage: 7.5MG BID

REACTIONS (28)
  - ABSCESS [None]
  - BONE DEBRIDEMENT [None]
  - BONE DISORDER [None]
  - CELLULITIS [None]
  - COLONOSCOPY ABNORMAL [None]
  - DENTAL CARIES [None]
  - DENTURE WEARER [None]
  - DRY MOUTH [None]
  - ERYTHEMA [None]
  - FALL [None]
  - FISTULA [None]
  - GASTROINTESTINAL HAEMORRHAGE [None]
  - GINGIVAL INFECTION [None]
  - GINGIVAL ULCERATION [None]
  - HAEMOGLOBIN DECREASED [None]
  - IMPAIRED HEALING [None]
  - INCISIONAL DRAINAGE [None]
  - MASTICATION DISORDER [None]
  - OSTEONECROSIS [None]
  - RECTAL HAEMORRHAGE [None]
  - SOFT TISSUE INFECTION [None]
  - SWELLING [None]
  - TENDERNESS [None]
  - TOOTH DISORDER [None]
  - TOOTH EXTRACTION [None]
  - TOOTH FRACTURE [None]
  - TOOTH LOSS [None]
  - URINARY TRACT INFECTION [None]
